FAERS Safety Report 5407289-0 (Version None)
Quarter: 2007Q3

REPORT INFORMATION
  Report Type: 
  Country: None (occurrence: None)
  Receive Date: 20070807
  Receipt Date: 20070726
  Transmission Date: 20080115
  Serious: Yes (Hospitalization)
  Sender: FDA-Public Use
  Company Number: US-ELI_LILLY_AND_COMPANY-US200707006562

PATIENT
  Age: 54 Year
  Sex: Female
  Weight: 113.83 kg

DRUGS (15)
  1. ZYPREXA [Suspect]
     Indication: DEPRESSION
     Dosage: 2.5 MG, DAILY (1/D)
     Route: 048
     Dates: start: 20020826, end: 20020829
  2. ZYPREXA [Suspect]
     Dosage: 5 MG, QOD
     Route: 048
     Dates: start: 20060801, end: 20061020
  3. ZYPREXA [Suspect]
     Dosage: 2.5 MG, 2/D
     Route: 048
     Dates: start: 20020829, end: 20060713
  4. PROZAC [Suspect]
     Indication: DEPRESSION
     Dosage: 20 MG, QOD
     Route: 048
     Dates: start: 19980901
  5. PROZAC [Suspect]
     Dosage: 40 MG, QOD
     Route: 048
     Dates: end: 20020128
  6. PROZAC [Suspect]
     Dosage: 40 MG, DAILY (1/D)
     Route: 048
     Dates: start: 20020128
  7. DYAZIDE [Concomitant]
     Dosage: 1 UNK, DAILY (1/D)
     Route: 048
     Dates: end: 20031120
  8. DETROL [Concomitant]
     Indication: URINARY INCONTINENCE
     Dosage: 2 MG, 2/D
     Route: 048
     Dates: end: 20040101
  9. DETROL [Concomitant]
     Dosage: 4 MG, DAILY (1/D)
     Route: 048
     Dates: start: 20040101
  10. ENTERIC ASPIRIN [Concomitant]
     Dosage: 325 MG, DAILY (1/D)
     Route: 048
  11. TOPROL-XL [Concomitant]
     Indication: HYPERTENSION
     Dosage: 25 MG, DAILY (1/D)
     Route: 048
     Dates: start: 20031201
  12. COUMADIN [Concomitant]
     Indication: ATRIAL SEPTAL DEFECT
     Dosage: 5 MG, DAILY (1/D)
     Route: 048
     Dates: start: 20031201, end: 20051001
  13. LOVENOX [Concomitant]
     Indication: ATRIAL SEPTAL DEFECT
     Dosage: 1 MG/KG, 2/D
     Route: 058
     Dates: start: 20031226, end: 20031229
  14. CYMBALTA [Concomitant]
     Indication: DEPRESSION
     Dosage: 20 MG, 2/D
     Route: 048
     Dates: start: 20061020, end: 20070424
  15. CYMBALTA [Concomitant]
     Dosage: 30 MG, 2/D
     Route: 048
     Dates: start: 20070424

REACTIONS (21)
  - ANEURYSM [None]
  - BLOOD ALKALINE PHOSPHATASE INCREASED [None]
  - BLOOD CHOLESTEROL INCREASED [None]
  - BLOOD TRIGLYCERIDES INCREASED [None]
  - BLOOD URINE PRESENT [None]
  - CELLULITIS [None]
  - CHEST PAIN [None]
  - DRUG INEFFECTIVE [None]
  - HAEMATOCRIT DECREASED [None]
  - HAEMATOMA [None]
  - HEART RATE IRREGULAR [None]
  - HIGH DENSITY LIPOPROTEIN DECREASED [None]
  - HYPERGLYCAEMIA [None]
  - HYPERLIPIDAEMIA [None]
  - INTERNATIONAL NORMALISED RATIO INCREASED [None]
  - PROTHROMBIN TIME PROLONGED [None]
  - TYPE 2 DIABETES MELLITUS [None]
  - URINE ALBUMIN/CREATININE RATIO INCREASED [None]
  - VESSEL PUNCTURE SITE HAEMATOMA [None]
  - WEIGHT INCREASED [None]
  - WOUND HAEMORRHAGE [None]
